FAERS Safety Report 16327399 (Version 1)
Quarter: 2019Q2

REPORT INFORMATION
  Report Type: Spontaneous
  Country: US (occurrence: US)
  Receive Date: 20190517
  Receipt Date: 20190517
  Transmission Date: 20190711
  Serious: Yes (Congenital Anomaly)
  Sender: FDA-Public Use
  Company Number: US-BIOGEN-2019BI00738273

PATIENT

DRUGS (2)
  1. TECFIDERA [Suspect]
     Active Substance: DIMETHYL FUMARATE
     Indication: MATERNAL EXPOSURE TIMING UNSPECIFIED
     Dosage: STARTING DOSE
     Route: 064
     Dates: start: 201402, end: 201402
  2. TECFIDERA [Suspect]
     Active Substance: DIMETHYL FUMARATE
     Dosage: MAINTENANCE DOSE
     Route: 064
     Dates: start: 201402

REACTIONS (2)
  - Foetal exposure during pregnancy [Recovered/Resolved]
  - Fragile X syndrome [Not Recovered/Not Resolved]
